FAERS Safety Report 13990813 (Version 2)
Quarter: 2017Q3

REPORT INFORMATION
  Report Type: Spontaneous
  Country: AT (occurrence: AT)
  Receive Date: 20170920
  Receipt Date: 20170929
  Transmission Date: 20171128
  Serious: Yes (Hospitalization, Other)
  Sender: FDA-Public Use
  Company Number: AT-AMGEN-AUTSP2017139492

PATIENT
  Sex: Female

DRUGS (3)
  1. NEUROBION FORTE [Concomitant]
     Active Substance: CYANOCOBALAMIN\PYRIDOXINE HYDROCHLORIDE\THIAMINE DISULFIDE
  2. PROLIA [Suspect]
     Active Substance: DENOSUMAB
     Indication: OSTEOPOROSIS
     Dosage: UNK UNK, Q6MO
     Route: 058
     Dates: start: 201211
  3. CALCIUM [Concomitant]
     Active Substance: CALCIUM

REACTIONS (8)
  - Fall [Unknown]
  - Pathological fracture [Recovered/Resolved]
  - Foot fracture [Recovered/Resolved]
  - Ulna fracture [Unknown]
  - Comminuted fracture [Unknown]
  - Urinary tract infection [Not Recovered/Not Resolved]
  - Blood uric acid decreased [Unknown]
  - Stress fracture [Recovered/Resolved]

NARRATIVE: CASE EVENT DATE: 201512
